FAERS Safety Report 25340456 (Version 1)
Quarter: 2025Q2

REPORT INFORMATION
  Report Type: Report from Study
  Country: EG (occurrence: EG)
  Receive Date: 20250521
  Receipt Date: 20250521
  Transmission Date: 20250717
  Serious: Yes (Hospitalization, Disabling)
  Sender: TAIHO ONCOLOGY INC
  Company Number: EG-SERVIER-S25006644

PATIENT
  Age: 38 Year
  Sex: Male
  Weight: 82 kg

DRUGS (1)
  1. LONSURF [Suspect]
     Active Substance: TIPIRACIL HYDROCHLORIDE\TRIFLURIDINE
     Indication: Colorectal cancer metastatic
     Dosage: 70 MG, BID, ON DAY 1-5 AND 8-12 OF EACH 28-DAY CYCLE
     Route: 048
     Dates: start: 20250120, end: 202502

REACTIONS (6)
  - Back pain [Recovering/Resolving]
  - Gangrene [Recovering/Resolving]
  - Coma [Recovered/Resolved]
  - Anal haemorrhage [Recovering/Resolving]
  - Bone loss [Unknown]
  - Pain in extremity [Not Recovered/Not Resolved]

NARRATIVE: CASE EVENT DATE: 20250201
